FAERS Safety Report 19409086 (Version 1)
Quarter: 2021Q2

REPORT INFORMATION
  Report Type: Report from Study
  Country: None (occurrence: US)
  Receive Date: 20210613
  Receipt Date: 20210613
  Transmission Date: 20210717
  Serious: Yes (Other)
  Sender: FDA-Public Use
  Company Number: US-ABBVIE-21K-163-3944283-00

PATIENT
  Age: 36 Year
  Sex: Female

DRUGS (2)
  1. HUMIRA [Suspect]
     Active Substance: ADALIMUMAB
     Route: 058
     Dates: start: 20210428
  2. HUMIRA [Suspect]
     Active Substance: ADALIMUMAB
     Indication: PSORIATIC ARTHROPATHY
     Route: 058
     Dates: start: 2018

REACTIONS (12)
  - Psoriasis [Not Recovered/Not Resolved]
  - Muscular weakness [Not Recovered/Not Resolved]
  - Systemic lupus erythematosus [Not Recovered/Not Resolved]
  - Joint swelling [Not Recovered/Not Resolved]
  - Arthralgia [Recovering/Resolving]
  - Muscle spasms [Unknown]
  - Injection site pain [Unknown]
  - General physical health deterioration [Unknown]
  - Mobility decreased [Unknown]
  - Pain [Unknown]
  - Loss of personal independence in daily activities [Unknown]
  - Joint stiffness [Recovering/Resolving]

NARRATIVE: CASE EVENT DATE: 20210428
